FAERS Safety Report 8188378-7 (Version None)
Quarter: 2012Q1

REPORT INFORMATION
  Report Type: 
  Country: None (occurrence: None)
  Receive Date: 20120306
  Receipt Date: 20120221
  Transmission Date: 20120608
  Serious: Yes (Hospitalization, Other)
  Sender: FDA-Public Use
  Company Number: PHHY2012NL015443

PATIENT
  Sex: Male
  Weight: 100 kg

DRUGS (3)
  1. GLEEVEC [Suspect]
     Indication: CHRONIC MYELOID LEUKAEMIA
     Dosage: 400 MG, QD
     Route: 048
     Dates: start: 20111228
  2. LEVOTHYROXINE SODIUM [Concomitant]
     Dosage: 100 UG ONCE DAILY
     Route: 048
     Dates: start: 20070101
  3. ENALAPRIL MALEATE [Concomitant]
     Dosage: 20 MG, QD
     Route: 048
     Dates: start: 20060101

REACTIONS (4)
  - PARANEOPLASTIC SYNDROME [None]
  - PAIN [None]
  - SWELLING [None]
  - ARTHRITIS [None]
